FAERS Safety Report 6893703-0 (Version None)
Quarter: 2010Q3

REPORT INFORMATION
  Report Type: 
  Country: None (occurrence: None)
  Receive Date: 20100731
  Receipt Date: 20100113
  Transmission Date: 20110219
  Serious: No
  Sender: FDA-Public Use
  Company Number: US-PFIZER INC-2009219224

PATIENT
  Sex: Female
  Weight: 57.6 kg

DRUGS (3)
  1. CAMPTOSAR [Suspect]
     Indication: OVARIAN CANCER
     Dosage: 40 MG, CYCLIC
     Dates: start: 20090507, end: 20090702
  2. CARBOPLATIN [Concomitant]
     Dosage: 100 MG, CYCLIC
  3. PAXIL [Concomitant]
     Dosage: UNK

REACTIONS (5)
  - ARTHRALGIA [None]
  - BURNING SENSATION [None]
  - ERYTHEMA [None]
  - FATIGUE [None]
  - JOINT SWELLING [None]
